FAERS Safety Report 18593796 (Version 2)
Quarter: 2021Q1

REPORT INFORMATION
  Report Type: Spontaneous
  Country: US (occurrence: US)
  Receive Date: 20201208
  Receipt Date: 20210319
  Transmission Date: 20210419
  Serious: No
  Sender: FDA-Public Use
  Company Number: US-BIOGEN-2020BI00953291

PATIENT
  Sex: Female

DRUGS (1)
  1. TECFIDERA [Suspect]
     Active Substance: DIMETHYL FUMARATE
     Indication: MULTIPLE SCLEROSIS
     Route: 065
     Dates: start: 20150616

REACTIONS (6)
  - Feeling hot [Unknown]
  - Product dose omission issue [Unknown]
  - Flushing [Not Recovered/Not Resolved]
  - Weight increased [Unknown]
  - Insomnia [Unknown]
  - Fatigue [Unknown]
